FAERS Safety Report 8153153-6 (Version None)
Quarter: 2012Q1

REPORT INFORMATION
  Report Type: 
  Country: None (occurrence: None)
  Receive Date: 20120221
  Receipt Date: 20120207
  Transmission Date: 20120608
  Serious: Yes (Other)
  Sender: FDA-Public Use
  Company Number: US-SANOFI-AVENTIS-2012SA008390

PATIENT

DRUGS (1)
  1. FERRLECIT [Suspect]
     Route: 065

REACTIONS (1)
  - DRUG INTOLERANCE [None]
